FAERS Safety Report 11514158 (Version 1)
Quarter: 2015Q3

REPORT INFORMATION
  Report Type: Spontaneous
  Country: US (occurrence: US)
  Receive Date: 20150903
  Receipt Date: 20150903
  Transmission Date: 20151125
  Serious: No
  Sender: FDA-Public Use
  Company Number: US-ELI_LILLY_AND_COMPANY-US201212005412

PATIENT
  Age: 61 Year
  Sex: Female

DRUGS (1)
  1. CYMBALTA [Suspect]
     Active Substance: DULOXETINE HYDROCHLORIDE
     Indication: DEPRESSION
     Dosage: 20 MG, QD
     Dates: start: 2006, end: 201211

REACTIONS (6)
  - Dizziness [Unknown]
  - Drug withdrawal syndrome [Unknown]
  - Tinnitus [Unknown]
  - Apathy [Unknown]
  - Drug ineffective [Unknown]
  - Nausea [Unknown]
